FAERS Safety Report 5801692-2 (Version None)
Quarter: 2008Q3

REPORT INFORMATION
  Report Type: 
  Country: None (occurrence: None)
  Receive Date: 20080707
  Receipt Date: 20080626
  Transmission Date: 20090109
  Serious: Yes (Hospitalization)
  Sender: FDA-Public Use
  Company Number: B0526771A

PATIENT
  Age: 58 Year
  Sex: Female

DRUGS (4)
  1. CLAMOXYL [Suspect]
     Indication: URINARY TRACT INFECTION
     Dosage: 1G THREE TIMES PER DAY
     Route: 042
     Dates: start: 20080430, end: 20080504
  2. AUGMENTIN '125' [Suspect]
     Indication: URINARY TRACT INFECTION
     Route: 048
     Dates: start: 20080506, end: 20080508
  3. NOVONORM [Concomitant]
     Route: 065
     Dates: end: 20080508
  4. DAONIL [Concomitant]
     Route: 065

REACTIONS (2)
  - COOMBS TEST POSITIVE [None]
  - HAEMOLYTIC ANAEMIA [None]
